FAERS Safety Report 12683894 (Version 1)
Quarter: 2016Q3

REPORT INFORMATION
  Report Type: Spontaneous
  Country: US (occurrence: US)
  Receive Date: 20160825
  Receipt Date: 20160825
  Transmission Date: 20161109
  Serious: Yes (Hospitalization, Other)
  Sender: FDA-Public Use
  Company Number: US-PFIZER INC-2016393545

PATIENT
  Age: 75 Year
  Sex: Female
  Weight: 63.5 kg

DRUGS (2)
  1. CELEBREX [Suspect]
     Active Substance: CELECOXIB
     Dosage: UNK
  2. DIAZEPAM. [Concomitant]
     Active Substance: DIAZEPAM
     Indication: SLEEP DISORDER
     Dosage: UNK

REACTIONS (14)
  - Blood pressure decreased [Recovering/Resolving]
  - Swelling [Recovering/Resolving]
  - Peripheral swelling [Recovering/Resolving]
  - Pruritus [Recovering/Resolving]
  - Erythema [Recovering/Resolving]
  - Ear infection [Recovering/Resolving]
  - Anaphylactic reaction [Recovering/Resolving]
  - Local swelling [Recovering/Resolving]
  - Hypersensitivity [Recovering/Resolving]
  - Urticaria [Not Recovered/Not Resolved]
  - Ear swelling [Recovering/Resolving]
  - Angioedema [Recovering/Resolving]
  - Lip swelling [Recovering/Resolving]
  - Histamine level increased [Not Recovered/Not Resolved]

NARRATIVE: CASE EVENT DATE: 20160806
